FAERS Safety Report 5872047-X (Version None)
Quarter: 2008Q3

REPORT INFORMATION
  Report Type: 
  Country: None (occurrence: None)
  Receive Date: 20080905
  Receipt Date: 20080902
  Transmission Date: 20090109
  Serious: Yes (Other)
  Sender: FDA-Public Use
  Company Number: DE-AVENTIS-200812342DE

PATIENT
  Age: 31 Year
  Sex: Female

DRUGS (3)
  1. TRENTAL [Suspect]
     Dates: start: 20080101
  2. CORTISON [Concomitant]
     Dates: start: 20080101, end: 20080101
  3. CORTISON [Concomitant]
     Dates: start: 20080101

REACTIONS (3)
  - INSOMNIA [None]
  - PANIC ATTACK [None]
  - RESTLESSNESS [None]
